FAERS Safety Report 14574718 (Version 1)
Quarter: 2018Q1

REPORT INFORMATION
  Report Type: Spontaneous
  Country: US (occurrence: US)
  Receive Date: 20180227
  Receipt Date: 20180227
  Transmission Date: 20180509
  Serious: No
  Sender: FDA-Public Use
  Company Number: US-ROCHE-1956556

PATIENT
  Sex: Female

DRUGS (1)
  1. XOLAIR [Suspect]
     Active Substance: OMALIZUMAB
     Indication: PRODUCT USED FOR UNKNOWN INDICATION
     Dosage: YES
     Route: 058
     Dates: start: 2012

REACTIONS (5)
  - Hypoaesthesia [Unknown]
  - Arthralgia [Unknown]
  - Skin discolouration [Unknown]
  - Oedema peripheral [Unknown]
  - Gait disturbance [Unknown]
